FAERS Safety Report 5558863-2 (Version None)
Quarter: 2007Q4

REPORT INFORMATION
  Report Type: 
  Country: None (occurrence: None)
  Receive Date: 20071214
  Receipt Date: 20071205
  Transmission Date: 20080405
  Serious: Yes (Other)
  Sender: FDA-Public Use
  Company Number: JP-PFIZER INC-2007103554

PATIENT
  Age: 28 Year
  Sex: Female

DRUGS (7)
  1. SOLU-MEDROL [Suspect]
     Dosage: TEXT:TDD:125 MG/BODY
  2. FK [Suspect]
     Route: 042
  3. FK [Suspect]
     Route: 048
  4. MYCOPHENOLATE MOFETIL [Suspect]
  5. ALL OTHER THERAPEUTIC PRODUCTS [Suspect]
  6. PGE 1 [Suspect]
  7. FOY [Suspect]

REACTIONS (1)
  - HAEMOLYTIC URAEMIC SYNDROME [None]
